FAERS Safety Report 5234824-8 (Version None)
Quarter: 2007Q1

REPORT INFORMATION
  Report Type: 
  Country: None (occurrence: None)
  Receive Date: 20070209
  Receipt Date: 20070202
  Transmission Date: 20070707
  Serious: Yes (Other)
  Sender: FDA-Public Use
  Company Number: US-PFIZER INC-2007000443

PATIENT
  Sex: Female
  Weight: 59 kg

DRUGS (4)
  1. XANAX [Suspect]
     Indication: BLOOD PRESSURE
     Route: 048
  2. XANAX [Suspect]
     Indication: PANIC ATTACK
  3. AZMACORT [Concomitant]
  4. PROVENTIL [Concomitant]

REACTIONS (4)
  - HYPERTENSION [None]
  - PANIC ATTACK [None]
  - PRURITUS [None]
  - URTICARIA [None]
